FAERS Safety Report 15752846 (Version 1)
Quarter: 2018Q4

REPORT INFORMATION
  Report Type: Spontaneous
  Country: CH (occurrence: CH)
  Receive Date: 20181221
  Receipt Date: 20181221
  Transmission Date: 20190205
  Serious: Yes (Hospitalization)
  Sender: FDA-Public Use
  Company Number: PHHY2018CH187670

PATIENT

DRUGS (1)
  1. COSENTYX [Suspect]
     Active Substance: SECUKINUMAB
     Indication: PRODUCT USED FOR UNKNOWN INDICATION
     Dosage: UNK
     Route: 065
     Dates: start: 20180711

REACTIONS (7)
  - Antinuclear antibody [Unknown]
  - Anaemia [Unknown]
  - Liver function test abnormal [Recovering/Resolving]
  - Pyrexia [Unknown]
  - Hyperglycaemia [Unknown]
  - Pulmonary embolism [Unknown]
  - Hepatosplenomegaly [Unknown]

NARRATIVE: CASE EVENT DATE: 20180913
